FAERS Safety Report 19877390 (Version 1)
Quarter: 2021Q3

REPORT INFORMATION
  Report Type: Spontaneous
  Country: CN (occurrence: CN)
  Receive Date: 20210924
  Receipt Date: 20210924
  Transmission Date: 20211014
  Serious: Yes (Hospitalization)
  Sender: FDA-Public Use
  Company Number: CN-BAXTER-2021BAX024388

PATIENT
  Age: 44 Year
  Sex: Female
  Weight: 60 kg

DRUGS (6)
  1. ENDOXAN [Suspect]
     Active Substance: CYCLOPHOSPHAMIDE
     Dosage: DOSE REINTRODUCED, CYCLOPHOSPHAMIDE FOR INJECTION
     Route: 041
  2. ENDOXAN [Suspect]
     Active Substance: CYCLOPHOSPHAMIDE
     Indication: BREAST CANCER
     Dosage: CYCLOPHOSPHAMIDE FOR INJECTION 0.9 G + 0.9% SODIUM CHLORIDE INJECTION 50 ML
     Route: 041
     Dates: start: 20201225, end: 20201225
  3. 0.9% SODIUM CHLORIDE INJECTION [Suspect]
     Active Substance: SODIUM CHLORIDE
     Indication: MEDICATION DILUTION
     Dosage: CYCLOPHOSPHAMIDE FOR INJECTION 0.9 G + 0.9% SODIUM CHLORIDE INJECTION 50 ML
     Route: 041
     Dates: start: 20201225, end: 20201225
  4. 0.9% SODIUM CHLORIDE INJECTION [Suspect]
     Active Substance: SODIUM CHLORIDE
     Dosage: DOCETAXEL FOR INJECTION 110 MG + 0.9% SODIUM CHLORIDE INJECTION 250 ML IVGTT
     Route: 041
     Dates: start: 20201225, end: 20201225
  5. DOCETAXEL. [Suspect]
     Active Substance: DOCETAXEL
     Indication: BREAST CANCER
     Dosage: DOCETAXEL FOR INJECTION 110 MG + 0.9% SODIUM CHLORIDE INJECTION 250 ML IVGTT
     Route: 041
     Dates: start: 20201225, end: 20201225
  6. DOCETAXEL. [Suspect]
     Active Substance: DOCETAXEL
     Dosage: DOSE REINTRODUCED, DOCETAXEL FOR INJECTION
     Route: 041

REACTIONS (2)
  - Asthenia [Recovered/Resolved]
  - Leukopenia [Recovered/Resolved]

NARRATIVE: CASE EVENT DATE: 20210102
